FAERS Safety Report 5384903-X (Version None)
Quarter: 2007Q3

REPORT INFORMATION
  Report Type: 
  Country: None (occurrence: None)
  Receive Date: 20070709
  Receipt Date: 20070627
  Transmission Date: 20080115
  Serious: Yes (Hospitalization)
  Sender: FDA-Public Use
  Company Number: 2007BI012109

PATIENT
  Age: 76 Year
  Sex: Female

DRUGS (10)
  1. AVONEX [Suspect]
     Indication: MULTIPLE SCLEROSIS
     Dosage: 30 UG; QW; IM
     Route: 030
     Dates: start: 20050701
  2. DILANTIN [Concomitant]
  3. ECOTRIN [Concomitant]
  4. SINGULAIR [Concomitant]
  5. ACTOS [Concomitant]
  6. LIPITOR [Concomitant]
  7. SINEMET [Concomitant]
  8. PROTONIX [Concomitant]
  9. LORAZEPAM [Concomitant]
  10. AMBIEN [Concomitant]

REACTIONS (3)
  - FALL [None]
  - HIP FRACTURE [None]
  - LOWER LIMB FRACTURE [None]
